FAERS Safety Report 11853252 (Version 1)
Quarter: 2015Q4

REPORT INFORMATION
  Report Type: Spontaneous
  Country: US (occurrence: US)
  Receive Date: 20151218
  Receipt Date: 20151218
  Transmission Date: 20160305
  Serious: No
  Sender: FDA-Public Use
  Company Number: US-OTSUKA-2015_008800

PATIENT

DRUGS (1)
  1. ABILIFY MAINTENA [Suspect]
     Active Substance: ARIPIPRAZOLE
     Indication: SCHIZOPHRENIA
     Dosage: 400 MG, ONCE MONTHLY
     Route: 030

REACTIONS (3)
  - Mood altered [Not Recovered/Not Resolved]
  - Product packaging issue [Unknown]
  - Drug dose omission [Unknown]

NARRATIVE: CASE EVENT DATE: 201509
